FAERS Safety Report 4913741-4 (Version None)
Quarter: 2006Q1

REPORT INFORMATION
  Report Type: 
  Country: None (occurrence: None)
  Receive Date: 20060216
  Receipt Date: 20060209
  Transmission Date: 20060701
  Serious: Yes (Hospitalization)
  Sender: FDA-Public Use
  Company Number: CH-AVENTIS-200611312GDDC

PATIENT
  Age: 51 Year
  Sex: Male

DRUGS (9)
  1. RIFINAH [Suspect]
     Dosage: DOSE: 1 DOSAGE FORM
     Route: 048
     Dates: end: 20051230
  2. LONITEN [Suspect]
     Indication: ESSENTIAL HYPERTENSION
     Route: 048
     Dates: start: 20050601, end: 20060123
  3. TORSEMIDE [Concomitant]
     Route: 048
  4. SANDIMMUNE [Concomitant]
     Route: 048
  5. MYFORTIC                                /SCH/ [Concomitant]
     Route: 048
  6. COZAAR [Concomitant]
     Route: 048
  7. BELOC [Concomitant]
     Dosage: DOSE: I DOSAGE FORM
     Route: 048
  8. NORVASC [Concomitant]
     Route: 048
  9. RECORMON [Concomitant]

REACTIONS (4)
  - FLUID RETENTION [None]
  - PERICARDIAL EFFUSION [None]
  - PLEURAL EFFUSION [None]
  - WEIGHT INCREASED [None]
